FAERS Safety Report 9830005 (Version 2)
Quarter: 2014Q2

REPORT INFORMATION
  Report Type: Report from Study
  Country: US (occurrence: US)
  Receive Date: 20140120
  Receipt Date: 20140605
  Transmission Date: 20141212
  Serious: Yes (Other)
  Sender: FDA-Public Use
  Company Number: PHEH2014US001103

PATIENT
  Sex: Female
  Weight: 11.7 kg

DRUGS (7)
  1. TOBI [Suspect]
     Indication: CYSTIC FIBROSIS
     Dosage: 1 DF, BID
     Route: 055
  2. TOBI [Suspect]
     Indication: PSEUDOMONAS INFECTION
  3. ZENPEP [Concomitant]
     Indication: PANCREATIC INSUFFICIENCY
     Dosage: UNK
     Route: 048
  4. VITAMIN D [Concomitant]
     Indication: VITAMIN D DEFICIENCY
     Dosage: UNK
     Route: 048
  5. PULMOZYME [Concomitant]
     Indication: CYSTIC FIBROSIS
     Dosage: UNK
     Route: 055
  6. PREVACID [Concomitant]
     Indication: GASTROOESOPHAGEAL REFLUX DISEASE
     Dosage: UNK
     Route: 048
  7. AQUADEKS [Concomitant]
     Indication: PANCREATIC INSUFFICIENCY
     Dosage: UNK
     Route: 048

REACTIONS (3)
  - Somnolence [Unknown]
  - Pseudomonas test positive [Unknown]
  - Drug administered to patient of inappropriate age [Unknown]
